FAERS Safety Report 6279645-2 (Version None)
Quarter: 2009Q3

REPORT INFORMATION
  Report Type: 
  Country: None (occurrence: None)
  Receive Date: 20090721
  Receipt Date: 20090715
  Transmission Date: 20100115
  Serious: Yes (Hospitalization)
  Sender: FDA-Public Use
  Company Number: GXKR2009DE08058

PATIENT
  Age: 69 Year
  Sex: Male
  Weight: 176 kg

DRUGS (9)
  1. PARACETAMOL         (PARACETAMOL) TABLET [Suspect]
     Indication: PROCEDURAL PAIN
     Dosage: 500 MG, TID, ORAL
     Route: 048
     Dates: start: 20090226, end: 20090227
  2. VOLTAREN [Suspect]
     Indication: PROCEDURAL PAIN
     Dosage: 75 MG, BID, ORAL
     Route: 048
     Dates: start: 20090225, end: 20090227
  3. RAMIPRIL [Concomitant]
  4. OMEP (OMEPRAZOLE) [Concomitant]
  5. BUPRENORPHINE HCL [Concomitant]
  6. IBUPROFEN [Concomitant]
  7. TERAZOSIN HCL [Concomitant]
  8. CEFUROXIME [Concomitant]
  9. BERLOSIN (METAMIZOLE SODIUM) [Concomitant]

REACTIONS (1)
  - PANCREATITIS [None]
